FAERS Safety Report 9537309 (Version 2)
Quarter: 2013Q3

REPORT INFORMATION
  Report Type: Spontaneous
  Country: BR (occurrence: BR)
  Receive Date: 20130919
  Receipt Date: 20130919
  Transmission Date: 20140515
  Serious: Yes (Other)
  Sender: FDA-Public Use
  Company Number: BR-JNJFOC-20130805444

PATIENT
  Sex: Female
  Weight: 53 kg

DRUGS (13)
  1. REMICADE [Suspect]
     Indication: FISTULA
     Route: 042
     Dates: start: 2008
  2. REMICADE [Suspect]
     Indication: FISTULA
     Route: 042
  3. REMICADE [Suspect]
     Indication: FISTULA
     Route: 042
     Dates: start: 20120716
  4. REMICADE [Suspect]
     Indication: FISTULA
     Route: 042
  5. REMICADE [Suspect]
     Indication: FISTULA
     Route: 042
     Dates: start: 20120816
  6. REMICADE [Suspect]
     Indication: CROHN^S DISEASE
     Route: 042
     Dates: start: 20120716
  7. REMICADE [Suspect]
     Indication: CROHN^S DISEASE
     Route: 042
     Dates: start: 20120816
  8. REMICADE [Suspect]
     Indication: CROHN^S DISEASE
     Route: 042
  9. REMICADE [Suspect]
     Indication: CROHN^S DISEASE
     Route: 042
  10. REMICADE [Suspect]
     Indication: CROHN^S DISEASE
     Route: 042
     Dates: start: 2008
  11. AZATHIOPRINE [Concomitant]
     Route: 065
  12. RIVOTRIL [Concomitant]
     Indication: SLEEP DISORDER THERAPY
     Route: 065
  13. CLOMIPRAMINE [Concomitant]
     Indication: ANTIDEPRESSANT THERAPY
     Route: 065

REACTIONS (7)
  - Infection [Unknown]
  - Osteoporosis [Unknown]
  - Diabetes mellitus [Unknown]
  - Fracture [Recovered/Resolved]
  - Urinary tract infection [Unknown]
  - Decreased immune responsiveness [Not Recovered/Not Resolved]
  - Crohn^s disease [Unknown]
